FAERS Safety Report 13482451 (Version 2)
Quarter: 2017Q3

REPORT INFORMATION
  Report Type: Report from Study
  Country: US (occurrence: US)
  Receive Date: 20170424
  Receipt Date: 20170728
  Transmission Date: 20171127
  Serious: No
  Sender: FDA-Public Use
  Company Number: US-AMGEN-USASL2017052946

PATIENT
  Age: 66 Year
  Sex: Female

DRUGS (1)
  1. REPATHA [Suspect]
     Active Substance: EVOLOCUMAB
     Indication: BLOOD CHOLESTEROL ABNORMAL
     Dosage: 140 MG, Q3WK
     Route: 065
     Dates: start: 20170322

REACTIONS (7)
  - Oropharyngeal pain [Unknown]
  - Discomfort [Unknown]
  - Decreased appetite [Unknown]
  - Dysphagia [Unknown]
  - Pain [Unknown]
  - Headache [Unknown]
  - Pharyngeal inflammation [Unknown]

NARRATIVE: CASE EVENT DATE: 20170329
